FAERS Safety Report 5503381-0 (Version None)
Quarter: 2007Q4

REPORT INFORMATION
  Report Type: 
  Country: None (occurrence: None)
  Receive Date: 20071031
  Receipt Date: 20071022
  Transmission Date: 20080405
  Serious: Yes (Death)
  Sender: FDA-Public Use
  Company Number: AU-PFIZER INC-2007075772

PATIENT
  Sex: Female
  Weight: 51 kg

DRUGS (5)
  1. SUTENT [Suspect]
     Route: 048
  2. ALENDRONATE SODIUM [Concomitant]
  3. ATENOLOL [Concomitant]
  4. MOBIC [Concomitant]
  5. SIMVASTATIN [Concomitant]

REACTIONS (1)
  - DEATH [None]
